FAERS Safety Report 21697959 (Version 1)
Quarter: 2022Q4

REPORT INFORMATION
  Report Type: Spontaneous
  Country: US (occurrence: US)
  Receive Date: 20221208
  Receipt Date: 20221208
  Transmission Date: 20230113
  Serious: No
  Sender: FDA-Public Use
  Company Number: US-CADILA HEALTHCARE LIMITED-US-ZYDUS-075643

PATIENT

DRUGS (1)
  1. DEXTROAMPHET SACCHARAT, AMPHET ASPARTATE, DEXTROAMPHET SULFATE AND AMP [Suspect]
     Active Substance: AMPHETAMINE ASPARTATE\AMPHETAMINE SULFATE\DEXTROAMPHETAMINE SACCHARATE\DEXTROAMPHETAMINE SULFATE
     Indication: Product used for unknown indication
     Dosage: 20 MILLIGRAM
     Dates: start: 20210923

REACTIONS (7)
  - Anxiety [Not Recovered/Not Resolved]
  - Mental status changes [Unknown]
  - Condition aggravated [Unknown]
  - Panic attack [Unknown]
  - Thinking abnormal [Unknown]
  - Negative thoughts [Unknown]
  - Impaired work ability [Unknown]

NARRATIVE: CASE EVENT DATE: 20210901
